FAERS Safety Report 8816524 (Version 1)
Quarter: 2012Q4

REPORT INFORMATION
  Report Type: Spontaneous
  Country: US (occurrence: None)
  Receive Date: 20120927
  Receipt Date: 20120927
  Transmission Date: 20130627
  Serious: Yes (Hospitalization)
  Sender: FDA-Public Use
  Company Number: DSU-2012-07473

PATIENT
  Age: 68 Year
  Sex: Male

DRUGS (2)
  1. BENICAR [Suspect]
     Route: 048
  2. BENICAR [Suspect]
     Route: 048

REACTIONS (1)
  - Hypotension [None]
